FAERS Safety Report 4859388-X (Version None)
Quarter: 2005Q4

REPORT INFORMATION
  Report Type: 
  Country: None (occurrence: None)
  Receive Date: 20051219
  Receipt Date: 20041119
  Transmission Date: 20060501
  Serious: No
  Sender: FDA-Public Use
  Company Number: US-GLAXOSMITHKLINE-A0534614A

PATIENT
  Sex: Female

DRUGS (2)
  1. NICODERM (RX) [Suspect]
  2. NICORETTE [Suspect]

REACTIONS (6)
  - APPLICATION SITE REACTION [None]
  - DRUG ABUSER [None]
  - DRUG WITHDRAWAL SYNDROME [None]
  - DRY EYE [None]
  - DRY MOUTH [None]
  - HYPERSENSITIVITY [None]
